FAERS Safety Report 7027688-3 (Version None)
Quarter: 2010Q4

REPORT INFORMATION
  Report Type: 
  Country: None (occurrence: None)
  Receive Date: 20101004
  Receipt Date: 20100925
  Transmission Date: 20110411
  Serious: Yes (Other)
  Sender: FDA-Public Use
  Company Number: US-AMGEN-KDL441159

PATIENT
  Sex: Male

DRUGS (1)
  1. ENBREL [Suspect]
     Indication: RHEUMATOID ARTHRITIS
     Route: 058
     Dates: start: 20091109

REACTIONS (6)
  - INTERVERTEBRAL DISC DISORDER [None]
  - MUSCLE TWITCHING [None]
  - PERIPHERAL COLDNESS [None]
  - RASH PAPULAR [None]
  - RASH PRURITIC [None]
  - SENSORY DISTURBANCE [None]
